FAERS Safety Report 4386115-5 (Version None)
Quarter: 2004Q2

REPORT INFORMATION
  Report Type: 
  Country: None (occurrence: None)
  Receive Date: 20040625
  Receipt Date: 20040625
  Transmission Date: 20050107
  Serious: No
  Sender: FDA-Public Use
  Company Number: None

PATIENT
  Age: 67 Year
  Sex: Female

DRUGS (1)
  1. LIDOCAINE [Suspect]
     Indication: DIAGNOSTIC PROCEDURE
     Dosage: AEROSOL
     Dates: start: 20040210

REACTIONS (3)
  - BRONCHOSPASM [None]
  - RESPIRATORY DEPRESSION [None]
  - WHEEZING [None]
